FAERS Safety Report 15846760 (Version 1)
Quarter: 2019Q1

REPORT INFORMATION
  Report Type: Spontaneous
  Country: NO (occurrence: NO)
  Receive Date: 20190121
  Receipt Date: 20190121
  Transmission Date: 20190417
  Serious: Yes (Other)
  Sender: FDA-Public Use
  Company Number: NO-ROCHE-2247778

PATIENT
  Sex: Male

DRUGS (1)
  1. MABTHERA [Suspect]
     Active Substance: RITUXIMAB
     Indication: DIFFUSE VASCULITIS
     Route: 065

REACTIONS (4)
  - Internal injury [Not Recovered/Not Resolved]
  - Pain [Unknown]
  - Off label use [Unknown]
  - Intentional product use issue [Unknown]
